FAERS Safety Report 26044472 (Version 1)
Quarter: 2025Q4

REPORT INFORMATION
  Report Type: Spontaneous
  Country: EU (occurrence: EU)
  Receive Date: 20251114
  Receipt Date: 20251114
  Transmission Date: 20260118
  Serious: Yes (Other)
  Sender: STRIDES
  Company Number: EU-STRIDES ARCOLAB LIMITED-2025SP014115

PATIENT
  Age: 21 Year
  Sex: Female

DRUGS (6)
  1. METHOTREXATE [Suspect]
     Active Substance: METHOTREXATE
     Indication: Myasthenic syndrome
     Dosage: 7.5 MILLIGRAM, ONCE A WEEK
     Route: 065
  2. PREDNISOLONE [Suspect]
     Active Substance: PREDNISOLONE
     Indication: Myasthenic syndrome
     Dosage: 15 MILLIGRAM
     Route: 065
  3. AZATHIOPRINE [Suspect]
     Active Substance: AZATHIOPRINE
     Indication: Myasthenic syndrome
     Dosage: 100 MILLIGRAM, QD
     Route: 065
  4. PYRIDOSTIGMINE [Concomitant]
     Active Substance: PYRIDOSTIGMINE
     Indication: Myasthenic syndrome
     Dosage: UNK
     Route: 065
  5. AMIFAMPRIDINE [Concomitant]
     Active Substance: AMIFAMPRIDINE
     Indication: Myasthenic syndrome
     Dosage: UNK
     Route: 065
  6. Immunoglobulin [Concomitant]
     Indication: Myasthenic syndrome
     Dosage: UNK, ONCE A MONTH
     Route: 042

REACTIONS (4)
  - Psychotic disorder [Not Recovered/Not Resolved]
  - Gastrointestinal disorder [Unknown]
  - Drug intolerance [Unknown]
  - Off label use [Unknown]
